FAERS Safety Report 9123746 (Version 1)
Quarter: 2013Q1

REPORT INFORMATION
  Report Type: Spontaneous
  Country: BR (occurrence: BR)
  Receive Date: 20130115
  Receipt Date: 20130115
  Transmission Date: 20140127
  Serious: Yes (Hospitalization, Other)
  Sender: FDA-Public Use
  Company Number: BR-PFIZER INC-2013012862

PATIENT
  Age: 52 Year
  Sex: Female
  Weight: 78 kg

DRUGS (2)
  1. LYRICA [Suspect]
     Indication: LOWER LIMB FRACTURE
     Dosage: 75 MG (ONE CAPSULE), 2X/DAY
     Route: 048
     Dates: start: 20100110
  2. RECONTER [Concomitant]
     Indication: DEPRESSION
     Dosage: TWO TABLETS OF 10MG DAILYUNK
     Dates: start: 2006

REACTIONS (3)
  - Spinal fracture [Unknown]
  - Fall [Unknown]
  - Intervertebral disc protrusion [Unknown]
